FAERS Safety Report 14486155 (Version 9)
Quarter: 2018Q3

REPORT INFORMATION
  Report Type: Spontaneous
  Country: ES (occurrence: ES)
  Receive Date: 20180205
  Receipt Date: 20180918
  Transmission Date: 20181010
  Serious: Yes (Other)
  Sender: FDA-Public Use
  Company Number: ES-MYLANLABS-2018M1004934

PATIENT
  Age: 60 Year
  Sex: Male

DRUGS (35)
  1. AZATHIOPRINE. [Suspect]
     Active Substance: AZATHIOPRINE
     Indication: IMMUNODEFICIENCY COMMON VARIABLE
  2. INFLIXIMAB [Suspect]
     Active Substance: INFLIXIMAB
     Indication: GASTROINTESTINAL FISTULA
     Dosage: UNK
     Route: 042
  3. FILGRASTIM [Suspect]
     Active Substance: FILGRASTIM
     Indication: INFLAMMATORY BOWEL DISEASE
  4. BUDESONIDE. [Suspect]
     Active Substance: BUDESONIDE
     Indication: GASTROINTESTINAL FISTULA
  5. MESALAZINE [Suspect]
     Active Substance: MESALAMINE
     Indication: GASTROINTESTINAL FISTULA
  6. METHYLPREDNISOLONE SODIUM SUCCINATE. [Suspect]
     Active Substance: METHYLPREDNISOLONE SODIUM SUCCINATE
     Indication: INFLAMMATORY BOWEL DISEASE
     Dosage: UNK
     Route: 065
  7. USTEKINUMAB [Concomitant]
     Active Substance: USTEKINUMAB
     Indication: INFLAMMATORY BOWEL DISEASE
  8. BUDESONIDE. [Suspect]
     Active Substance: BUDESONIDE
     Indication: IMMUNODEFICIENCY COMMON VARIABLE
  9. IMUREL                             /00001501/ [Suspect]
     Active Substance: AZATHIOPRINE SODIUM
     Indication: IMMUNODEFICIENCY COMMON VARIABLE
  10. PENTASA [Suspect]
     Active Substance: MESALAMINE
     Indication: INFLAMMATORY BOWEL DISEASE
     Dosage: UNK
  11. USTEKINUMAB [Concomitant]
     Active Substance: USTEKINUMAB
     Indication: IMMUNODEFICIENCY COMMON VARIABLE
     Dosage: 180 MG, UNK
     Route: 058
  12. USTEKINUMAB [Concomitant]
     Active Substance: USTEKINUMAB
     Indication: FISTULA
  13. USTEKINUMAB [Concomitant]
     Active Substance: USTEKINUMAB
     Indication: PERFORATION
  14. MESALAZINE [Suspect]
     Active Substance: MESALAMINE
     Indication: IMMUNODEFICIENCY COMMON VARIABLE
     Dosage: UNK
     Route: 065
  15. MESALAZINE [Suspect]
     Active Substance: MESALAMINE
     Indication: INFLAMMATORY BOWEL DISEASE
  16. USTEKINUMAB [Concomitant]
     Active Substance: USTEKINUMAB
     Indication: GASTROINTESTINAL FISTULA
     Dosage: 90 MG, Q8WK
     Route: 058
     Dates: start: 2014
  17. USTEKINUMAB [Concomitant]
     Active Substance: USTEKINUMAB
     Indication: SMALL INTESTINAL OBSTRUCTION
  18. METHYLPREDNISOLONE SODIUM SUCCINATE. [Suspect]
     Active Substance: METHYLPREDNISOLONE SODIUM SUCCINATE
     Indication: IMMUNODEFICIENCY COMMON VARIABLE
  19. ADALIMUMAB [Suspect]
     Active Substance: ADALIMUMAB
     Indication: IMMUNODEFICIENCY COMMON VARIABLE
     Dosage: UNK
  20. NEUPOGEN [Suspect]
     Active Substance: FILGRASTIM
     Indication: IMMUNODEFICIENCY COMMON VARIABLE
  21. BUDESONIDE. [Suspect]
     Active Substance: BUDESONIDE
     Indication: INFLAMMATORY BOWEL DISEASE
     Dosage: UNK
     Route: 065
  22. GRANULOCYTE COLONY STIMULATING FACTOR [Suspect]
     Active Substance: GRANULOCYTE COLONY-STIMULATING FACTOR NOS
     Indication: INFLAMMATORY BOWEL DISEASE
     Dosage: UNK
     Route: 065
  23. INFLIXIMAB [Suspect]
     Active Substance: INFLIXIMAB
     Indication: IMMUNODEFICIENCY COMMON VARIABLE
  24. ADALIMUMAB [Suspect]
     Active Substance: ADALIMUMAB
     Indication: INFLAMMATORY BOWEL DISEASE
     Dosage: 40 MG, QW, Q WEEK
     Route: 065
     Dates: start: 20141001
  25. ADALIMUMAB [Suspect]
     Active Substance: ADALIMUMAB
     Indication: GASTROINTESTINAL FISTULA
  26. IMUREL                             /00001501/ [Suspect]
     Active Substance: AZATHIOPRINE SODIUM
     Indication: INFLAMMATORY BOWEL DISEASE
  27. BUDESONIDE. [Suspect]
     Active Substance: BUDESONIDE
     Indication: IMMUNODEFICIENCY COMMON VARIABLE
  28. AZATHIOPRINE. [Suspect]
     Active Substance: AZATHIOPRINE
     Indication: INFLAMMATORY BOWEL DISEASE
     Dosage: UNK
  29. METHYLPREDNISOLONE SODIUM SUCCINATE. [Suspect]
     Active Substance: METHYLPREDNISOLONE SODIUM SUCCINATE
     Indication: GASTROINTESTINAL FISTULA
  30. INFLIXIMAB [Suspect]
     Active Substance: INFLIXIMAB
     Indication: INFLAMMATORY BOWEL DISEASE
  31. NEUPOGEN [Suspect]
     Active Substance: FILGRASTIM
     Indication: INFLAMMATORY BOWEL DISEASE
  32. IMUREL                             /00001501/ [Suspect]
     Active Substance: AZATHIOPRINE SODIUM
     Indication: GASTROINTESTINAL FISTULA
  33. ENTOCORD [Suspect]
     Active Substance: BUDESONIDE
     Indication: INFLAMMATORY BOWEL DISEASE
     Dosage: UNK
  34. USTEKINUMAB [Concomitant]
     Active Substance: USTEKINUMAB
     Indication: IMMUNODEFICIENCY COMMON VARIABLE
  35. NEUPOGEN [Suspect]
     Active Substance: FILGRASTIM
     Indication: GASTROINTESTINAL FISTULA

REACTIONS (10)
  - Campylobacter gastroenteritis [Recovered/Resolved]
  - Gastroenteritis clostridial [Recovered/Resolved]
  - Cytomegalovirus enteritis [Recovered/Resolved]
  - Intestinal fistula [Recovered/Resolved]
  - Off label use [Unknown]
  - Small intestinal obstruction [Recovered/Resolved]
  - Intentional product use issue [Unknown]
  - Intestinal perforation [Recovered/Resolved]
  - Drug ineffective [Unknown]
  - Periumbilical abscess [Recovered/Resolved]

NARRATIVE: CASE EVENT DATE: 201410
